FAERS Safety Report 18339504 (Version 2)
Quarter: 2020Q4

REPORT INFORMATION
  Report Type: Report from Study
  Country: None (occurrence: US)
  Receive Date: 20201002
  Receipt Date: 20201104
  Transmission Date: 20210113
  Serious: Yes (Hospitalization, Other)
  Sender: FDA-Public Use
  Company Number: US-ABBVIE-20K-163-3401911-00

PATIENT
  Age: 53 Year
  Sex: Male
  Weight: 70.37 kg

DRUGS (2)
  1. HUMIRA [Suspect]
     Active Substance: ADALIMUMAB
     Indication: PSORIATIC ARTHROPATHY
     Dosage: CF
     Route: 058
     Dates: start: 202005, end: 202009
  2. HUMIRA [Suspect]
     Active Substance: ADALIMUMAB
     Indication: PSORIASIS
     Dosage: CF
     Route: 058
     Dates: start: 2010, end: 202004

REACTIONS (9)
  - COVID-19 [Recovered/Resolved]
  - Therapeutic product effect decreased [Recovered/Resolved]
  - Back pain [Not Recovered/Not Resolved]
  - Psoriasis [Recovering/Resolving]
  - Loss of consciousness [Recovered/Resolved]
  - Urine analysis abnormal [Recovering/Resolving]
  - Skin irritation [Not Recovered/Not Resolved]
  - Urine odour abnormal [Not Recovered/Not Resolved]
  - Road traffic accident [Not Recovered/Not Resolved]

NARRATIVE: CASE EVENT DATE: 2015
